FAERS Safety Report 17910148 (Version 3)
Quarter: 2020Q3

REPORT INFORMATION
  Report Type: Spontaneous
  Country: US (occurrence: US)
  Receive Date: 20200617
  Receipt Date: 20200722
  Transmission Date: 20201103
  Serious: Yes (Other)
  Sender: FDA-Public Use
  Company Number: NVSC2020US164030

PATIENT
  Age: 74 Year
  Sex: Male

DRUGS (1)
  1. BEOVU [Suspect]
     Active Substance: BROLUCIZUMAB-DBLL
     Indication: NEOVASCULAR AGE-RELATED MACULAR DEGENERATION
     Dosage: 6 MG (INTO THE EYES)
     Route: 047

REACTIONS (2)
  - Vitreous floaters [Unknown]
  - Uveitis [Unknown]

NARRATIVE: CASE EVENT DATE: 20200604
